FAERS Safety Report 7228721-6 (Version None)
Quarter: 2011Q1

REPORT INFORMATION
  Report Type: 
  Country: None (occurrence: None)
  Receive Date: 20110117
  Receipt Date: 20110111
  Transmission Date: 20110831
  Serious: No
  Sender: FDA-Public Use
  Company Number: US-BIOGENIDEC-2011BI001505

PATIENT
  Sex: Female

DRUGS (1)
  1. TYSABRI [Suspect]
     Indication: MULTIPLE SCLEROSIS
     Route: 042
     Dates: start: 20091211

REACTIONS (11)
  - PAIN [None]
  - ABNORMAL DREAMS [None]
  - TREMOR [None]
  - DEHYDRATION [None]
  - EAR INFECTION [None]
  - SINUSITIS [None]
  - HYPOAESTHESIA [None]
  - CHILLS [None]
  - PYREXIA [None]
  - DECREASED APPETITE [None]
  - HEADACHE [None]
